FAERS Safety Report 23708488 (Version 5)
Quarter: 2025Q3

REPORT INFORMATION
  Report Type: Report from Study
  Country: US (occurrence: US)
  Receive Date: 20240404
  Receipt Date: 20250903
  Transmission Date: 20251021
  Serious: No
  Sender: TG THERAPEUTICS
  Company Number: US-TG THERAPEUTICS INC.-TGT003320

PATIENT

DRUGS (3)
  1. UBLITUXIMAB [Suspect]
     Active Substance: UBLITUXIMAB
     Indication: Multiple sclerosis
     Route: 042
     Dates: start: 20230926, end: 20230926
  2. UBLITUXIMAB [Suspect]
     Active Substance: UBLITUXIMAB
     Route: 042
     Dates: start: 20231011, end: 20231011
  3. UBLITUXIMAB [Suspect]
     Active Substance: UBLITUXIMAB
     Route: 042
     Dates: start: 20240316, end: 20240316

REACTIONS (6)
  - Oral herpes [Unknown]
  - Infusion related reaction [Not Recovered/Not Resolved]
  - Cough [Not Recovered/Not Resolved]
  - Infusion site discomfort [Recovered/Resolved]
  - Vein collapse [Unknown]
  - Infusion site injury [Unknown]

NARRATIVE: CASE EVENT DATE: 20230101
